FAERS Safety Report 19817070 (Version 2)
Quarter: 2021Q3

REPORT INFORMATION
  Report Type: Report from Study
  Country: KR (occurrence: KR)
  Receive Date: 20210910
  Receipt Date: 20210915
  Transmission Date: 20211014
  Serious: Yes (Death, Hospitalization, Other)
  Sender: FDA-Public Use
  Company Number: KR-TAKEDA-2021TUS055973

PATIENT
  Age: 75 Year
  Sex: Male
  Weight: 68 kg

DRUGS (9)
  1. LENALIDOMIDE [Suspect]
     Active Substance: LENALIDOMIDE
     Dosage: 20 MILLIGRAM, QD
     Route: 048
     Dates: start: 20210726
  2. DEXAMETHASONE. [Suspect]
     Active Substance: DEXAMETHASONE
     Indication: PLASMA CELL MYELOMA
     Dosage: 40 MILLIGRAM, QD
     Route: 042
     Dates: start: 20210618
  3. AMARYL [Concomitant]
     Active Substance: GLIMEPIRIDE
     Indication: TYPE 2 DIABETES MELLITUS
     Dosage: 8 MILLIGRAM
     Route: 048
  4. HERBEN SR [Concomitant]
     Indication: THROMBOSIS PROPHYLAXIS
     Dosage: 90 MILLIGRAM
     Route: 048
     Dates: end: 20210905
  5. IXAZOMIB [Suspect]
     Active Substance: IXAZOMIB
     Indication: PLASMA CELL MYELOMA
     Dosage: 4 MILLIGRAM, QD
     Route: 048
     Dates: start: 20210618
  6. LENALIDOMIDE [Suspect]
     Active Substance: LENALIDOMIDE
     Indication: PLASMA CELL MYELOMA
     Dosage: 20 MILLIGRAM, QD
     Route: 048
     Dates: start: 20210618, end: 20210627
  7. ISOTRIL [Concomitant]
     Active Substance: ISOSORBIDE MONONITRATE
     Indication: THROMBOSIS PROPHYLAXIS
     Dosage: 60 MILLIGRAM
     Route: 048
     Dates: end: 20210905
  8. CEPHAMETHYL [Concomitant]
     Indication: PERIODONTITIS
     Dosage: 1000 MILLIGRAM
     Route: 048
     Dates: start: 20210813, end: 20210818
  9. TRAJENTA [Concomitant]
     Active Substance: LINAGLIPTIN
     Indication: TYPE 2 DIABETES MELLITUS
     Dosage: 5 MILLIGRAM
     Route: 065
     Dates: end: 20210905

REACTIONS (1)
  - Plasma cell myeloma [Fatal]

NARRATIVE: CASE EVENT DATE: 20210816
